FAERS Safety Report 14924166 (Version 2)
Quarter: 2018Q3

REPORT INFORMATION
  Report Type: Spontaneous
  Country: US (occurrence: US)
  Receive Date: 20180522
  Receipt Date: 20180705
  Transmission Date: 20181010
  Serious: Yes (Hospitalization)
  Sender: FDA-Public Use
  Company Number: US-ASTRAZENECA-2018SE64582

PATIENT
  Age: 30914 Day
  Sex: Female
  Weight: 54.4 kg

DRUGS (2)
  1. TUDORZA PRESSAIR [Suspect]
     Active Substance: ACLIDINIUM BROMIDE
     Indication: CHRONIC OBSTRUCTIVE PULMONARY DISEASE
     Dosage: 400UG/INHAL EVERY 12 HOURS
     Route: 055
  2. RIVASTIGMINE. [Concomitant]
     Active Substance: RIVASTIGMINE
     Indication: PRODUCT USED FOR UNKNOWN INDICATION
     Route: 023

REACTIONS (3)
  - Device malfunction [Unknown]
  - Bronchitis [Recovering/Resolving]
  - Device failure [Unknown]

NARRATIVE: CASE EVENT DATE: 20180407
